FAERS Safety Report 25101148 (Version 1)
Quarter: 2025Q1

REPORT INFORMATION
  Report Type: Spontaneous
  Country: TW (occurrence: TW)
  Receive Date: 20250320
  Receipt Date: 20250320
  Transmission Date: 20250409
  Serious: Yes (Hospitalization, Other)
  Sender: DAIICHI
  Company Number: TW-DSJP-DS-2025-130175-TW

PATIENT
  Age: 83 Year
  Sex: Male

DRUGS (3)
  1. EDOXABAN [Suspect]
     Active Substance: EDOXABAN
     Indication: Atrial fibrillation
     Route: 065
     Dates: end: 2024
  2. EDOXABAN [Suspect]
     Active Substance: EDOXABAN
     Route: 065
     Dates: start: 2024
  3. VANCOMYCIN [Suspect]
     Active Substance: VANCOMYCIN
     Indication: Product used for unknown indication
     Route: 065

REACTIONS (27)
  - Cardiac amyloidosis [Recovering/Resolving]
  - Pneumonia [Recovering/Resolving]
  - Haemorrhage [Recovering/Resolving]
  - Acute respiratory failure [Unknown]
  - Heart failure with preserved ejection fraction [Unknown]
  - Restrictive cardiomyopathy [Unknown]
  - Acquired ATTR amyloidosis [Unknown]
  - Dementia [Unknown]
  - Pleural effusion [Unknown]
  - Adrenal insufficiency [Unknown]
  - Cystitis [Unknown]
  - Acinetobacter infection [Unknown]
  - Escherichia infection [Unknown]
  - Skin infection [Unknown]
  - Eosinophilia [Unknown]
  - Drug eruption [Unknown]
  - Soft tissue infection [Unknown]
  - Urinary tract infection [Unknown]
  - Hypothyroidism [Unknown]
  - Aortic valve incompetence [Unknown]
  - Tricuspid valve incompetence [Unknown]
  - Aortic stenosis [Unknown]
  - Pulmonary hypertension [Unknown]
  - Ascites [Unknown]
  - Hyperbilirubinaemia [Unknown]
  - Hypertension [Unknown]
  - Off label use [Unknown]

NARRATIVE: CASE EVENT DATE: 20240101
